FAERS Safety Report 16872963 (Version 1)
Quarter: 2019Q4

REPORT INFORMATION
  Report Type: Report from Study
  Country: TR (occurrence: TR)
  Receive Date: 20191001
  Receipt Date: 20191001
  Transmission Date: 20200122
  Serious: Yes (Disabling)
  Sender: FDA-Public Use
  Company Number: TR-INFO-000852

PATIENT

DRUGS (3)
  1. CIPROFLOXACIN. [Suspect]
     Active Substance: CIPROFLOXACIN
     Route: 064
  2. FAMOTIDINE. [Concomitant]
     Active Substance: FAMOTIDINE
     Route: 064
  3. CEFDINIR. [Concomitant]
     Active Substance: CEFDINIR
     Route: 064

REACTIONS (3)
  - Premature baby [Not Recovered/Not Resolved]
  - Syringomyelia [Unknown]
  - Foetal exposure during pregnancy [Not Recovered/Not Resolved]
